FAERS Safety Report 5840459-6 (Version None)
Quarter: 2008Q3

REPORT INFORMATION
  Report Type: 
  Country: None (occurrence: None)
  Receive Date: 20080807
  Receipt Date: 20080807
  Transmission Date: 20090109
  Serious: Yes (Life-Threatening)
  Sender: FDA-Public Use
  Company Number: None

PATIENT
  Age: 85 Year
  Sex: Female
  Weight: 57 kg

DRUGS (1)
  1. CONIVAPTAN 20MG [Suspect]
     Indication: HYPONATRAEMIA
     Dosage: 20MG DAILY IV
     Route: 042
     Dates: start: 20080726, end: 20080727

REACTIONS (1)
  - ATRIAL FIBRILLATION [None]
